FAERS Safety Report 6706082-6 (Version None)
Quarter: 2010Q2

REPORT INFORMATION
  Report Type: 
  Country: None (occurrence: None)
  Receive Date: 20100503
  Receipt Date: 20100104
  Transmission Date: 20101027
  Serious: No
  Sender: FDA-Public Use
  Company Number: US-ASTRAZENECA-2010SE00404

PATIENT
  Age: 52 Year
  Sex: Female
  Weight: 72.6 kg

DRUGS (4)
  1. NEXIUM [Suspect]
     Indication: GASTROOESOPHAGEAL REFLUX DISEASE
     Route: 065
     Dates: start: 20040101
  2. NEXIUM [Suspect]
     Indication: HIATUS HERNIA
     Route: 065
     Dates: start: 20040101
  3. PRILOSEC [Concomitant]
     Indication: GASTROOESOPHAGEAL REFLUX DISEASE
  4. PRILOSEC [Concomitant]
     Indication: HIATUS HERNIA

REACTIONS (3)
  - DRUG DOSE OMISSION [None]
  - DYSPHAGIA [None]
  - GASTROOESOPHAGEAL REFLUX DISEASE [None]
